FAERS Safety Report 6165990-8 (Version None)
Quarter: 2009Q2

REPORT INFORMATION
  Report Type: 
  Country: None (occurrence: None)
  Receive Date: 20090422
  Receipt Date: 20090406
  Transmission Date: 20091009
  Serious: Yes (Death)
  Sender: FDA-Public Use
  Company Number: DSA_33493_2009

PATIENT
  Age: 69 Year
  Sex: Female
  Weight: 103.8737 kg

DRUGS (23)
  1. VASOTEC [Suspect]
     Indication: HYPERTENSION
     Dosage: (2.5 MG BID ORAL)
     Route: 048
  2. ALLOPURINOL [Suspect]
     Indication: DRUG USE FOR UNKNOWN INDICATION
     Dosage: (300 MG QD ORAL)
     Route: 048
  3. CLOPIDOGREL BISULFATE [Suspect]
     Indication: DRUG USE FOR UNKNOWN INDICATION
     Dosage: (75 MG QD ORAL)
     Route: 048
  4. CEFEPIME [Suspect]
     Indication: DRUG USE FOR UNKNOWN INDICATION
     Dosage: (1 G QD INTRAVENOUS)
     Route: 042
  5. VANCOMYCIN HCL [Suspect]
     Indication: DRUG USE FOR UNKNOWN INDICATION
     Dosage: (INTRAVENOUS)
     Route: 042
  6. MINOXIDIL [Suspect]
     Indication: HYPERTENSION
     Dosage: (2.5 MG QD ORAL)
     Route: 048
  7. ACETAMINOPHEN [Concomitant]
  8. ACETAMINOPHEN AND OXYCODONE HCL [Concomitant]
  9. ASPIRIN [Concomitant]
  10. CLONIDINE [Concomitant]
  11. DOXERCALCIFEROL [Concomitant]
  12. NIFEDIPINE [Concomitant]
  13. FOLIC ACID [Concomitant]
  14. FUROSEMIDE [Concomitant]
  15. METOPROLOL TARTRATE [Concomitant]
  16. PANTOPRAZOLE SODIUM [Concomitant]
  17. PAROXETINE /00830802/ [Concomitant]
  18. RISPERIDONE [Concomitant]
  19. SIMVASTATIN [Concomitant]
  20. VALSARTAN [Concomitant]
  21. FEMIRON MULTI-VITAMINS AND IRON [Concomitant]
  22. NITROGLYCERIN [Concomitant]
  23. EPOETIN ALFA [Concomitant]

REACTIONS (6)
  - ANGIOEDEMA [None]
  - CARDIO-RESPIRATORY ARREST [None]
  - GENERAL PHYSICAL HEALTH DETERIORATION [None]
  - STEVENS-JOHNSON SYNDROME [None]
  - TOXIC EPIDERMAL NECROLYSIS [None]
  - URINARY TRACT INFECTION [None]
